FAERS Safety Report 4603948-8 (Version None)
Quarter: 2005Q1

REPORT INFORMATION
  Report Type: 
  Country: None (occurrence: None)
  Receive Date: 20050310
  Receipt Date: 20050303
  Transmission Date: 20050727
  Serious: Yes (Hospitalization)
  Sender: FDA-Public Use
  Company Number: GB-GLAXOSMITHKLINE-B0373663A

PATIENT
  Age: 89 Year
  Sex: Male

DRUGS (4)
  1. AUGMENTIN '125' [Suspect]
     Indication: LOWER RESPIRATORY TRACT INFECTION
     Dosage: 375MG THREE TIMES PER DAY
     Route: 048
     Dates: start: 20041202, end: 20050117
  2. PERINDOPRIL [Concomitant]
     Indication: HYPERTENSION
     Dosage: 4MG PER DAY
     Route: 048
     Dates: start: 20020503
  3. DIGOXIN [Concomitant]
     Indication: ATRIAL FIBRILLATION
     Dosage: 125MCG PER DAY
     Route: 048
  4. FUROSEMIDE [Concomitant]
     Dosage: 80MG PER DAY
     Route: 048
     Dates: start: 20020101

REACTIONS (2)
  - BLISTER [None]
  - VASCULITIS [None]
